FAERS Safety Report 22360978 (Version 4)
Quarter: 2023Q4

REPORT INFORMATION
  Report Type: Spontaneous
  Country: US (occurrence: US)
  Receive Date: 20230524
  Receipt Date: 20231206
  Transmission Date: 20240110
  Serious: No
  Sender: FDA-Public Use
  Company Number: US-PFIZER INC-PV202300089569

PATIENT
  Age: 83 Year
  Sex: Female

DRUGS (1)
  1. IBRANCE [Suspect]
     Active Substance: PALBOCICLIB
     Indication: Breast cancer recurrent
     Dosage: 125 MG
     Route: 048

REACTIONS (4)
  - Pulmonary mass [Unknown]
  - Epistaxis [Unknown]
  - Cough [Recovering/Resolving]
  - Nausea [Unknown]
